FAERS Safety Report 7583818-6 (Version None)
Quarter: 2011Q2

REPORT INFORMATION
  Report Type: 
  Country: None (occurrence: None)
  Receive Date: 20110630
  Receipt Date: 20110620
  Transmission Date: 20111010
  Serious: Yes (Other)
  Sender: FDA-Public Use
  Company Number: CZ-AMGEN-CZESP2011031453

PATIENT
  Age: 75 Year
  Sex: Female

DRUGS (2)
  1. LANTHANUM CARBONATE [Concomitant]
     Dosage: 3 G, UNK
  2. CINACALCET HYDROCHLORIDE [Suspect]
     Indication: HYPERPARATHYROIDISM SECONDARY
     Dosage: 30 MG, QD

REACTIONS (5)
  - WOUND INFECTION [None]
  - SOFT TISSUE DISORDER [None]
  - MASS [None]
  - BLOOD PARATHYROID HORMONE INCREASED [None]
  - DRUG INTOLERANCE [None]
